FAERS Safety Report 6653041-8 (Version None)
Quarter: 2010Q1

REPORT INFORMATION
  Report Type: 
  Country: None (occurrence: None)
  Receive Date: 20100326
  Receipt Date: 20100316
  Transmission Date: 20100710
  Serious: Yes (Other)
  Sender: FDA-Public Use
  Company Number: PHHY2010NL10612

PATIENT
  Sex: Male

DRUGS (10)
  1. ZOMETA [Suspect]
     Indication: PROSTATE CANCER
     Dosage: 4 MG, UNK
     Route: 042
     Dates: start: 20100108, end: 20100125
  2. RHENIUM [Concomitant]
  3. ELIGARD [Concomitant]
  4. GLICAZIDE [Concomitant]
  5. DIOVAN [Concomitant]
  6. SIMVASTATIN [Concomitant]
  7. BICALUTAMIDE [Concomitant]
  8. AVODART [Concomitant]
  9. OXYCODONE [Concomitant]
  10. ACETAMINOPHEN [Concomitant]

REACTIONS (5)
  - HYPOCALCAEMIA [None]
  - MALAISE [None]
  - PYREXIA [None]
  - TREMOR [None]
  - VOMITING [None]
